FAERS Safety Report 6678751-8 (Version None)
Quarter: 2010Q2

REPORT INFORMATION
  Report Type: 
  Country: None (occurrence: None)
  Receive Date: 20100412
  Receipt Date: 20100412
  Transmission Date: 20101027
  Serious: Yes (Life-Threatening, Other)
  Sender: FDA-Public Use
  Company Number: None

PATIENT
  Age: 64 Year
  Sex: Female
  Weight: 65.7716 kg

DRUGS (1)
  1. FENOFEXADINE HCL 60 MG. TEVA USA [Suspect]
     Indication: HYPERSENSITIVITY
     Dosage: ONE ONCE A DAY PO
     Route: 048
     Dates: start: 20100404, end: 20100408

REACTIONS (11)
  - BRADYPHRENIA [None]
  - DIZZINESS [None]
  - DRY MOUTH [None]
  - HEADACHE [None]
  - IRRITABILITY [None]
  - NAUSEA [None]
  - PALPITATIONS [None]
  - PRODUCT SUBSTITUTION ISSUE [None]
  - TREMOR [None]
  - UNEVALUABLE EVENT [None]
  - VERTIGO [None]
